FAERS Safety Report 10262190 (Version 3)
Quarter: 2014Q3

REPORT INFORMATION
  Report Type: Spontaneous
  Country: BE (occurrence: BE)
  Receive Date: 20140626
  Receipt Date: 20140701
  Transmission Date: 20150326
  Serious: Yes (Hospitalization)
  Sender: FDA-Public Use
  Company Number: BE-GLAXOSMITHKLINE-B1006439A

PATIENT
  Age: 31 Year
  Sex: Female

DRUGS (3)
  1. PARACETAMOL [Concomitant]
     Active Substance: ACETAMINOPHEN
     Indication: PYREXIA
     Route: 065
  2. LAMICTAL [Suspect]
     Active Substance: LAMOTRIGINE
     Indication: PRODUCT USED FOR UNKNOWN INDICATION
     Dosage: 150MG PER DAY
     Route: 065
  3. IBUPROFEN. [Concomitant]
     Active Substance: IBUPROFEN
     Indication: PYREXIA
     Route: 065

REACTIONS (17)
  - Hepatomegaly [Recovering/Resolving]
  - Rash [Recovering/Resolving]
  - Nausea [Recovering/Resolving]
  - Arthralgia [Recovering/Resolving]
  - Conjunctivitis [Recovering/Resolving]
  - Inflammation [Unknown]
  - Dermatitis bullous [Unknown]
  - Thrombocytopenia [Recovering/Resolving]
  - Lymphadenopathy [Recovering/Resolving]
  - Rhinorrhoea [Recovering/Resolving]
  - Eosinophilia [Unknown]
  - Vomiting [Recovering/Resolving]
  - Leukopenia [Recovering/Resolving]
  - Sinus tachycardia [Recovering/Resolving]
  - Lymphopenia [Unknown]
  - Drug reaction with eosinophilia and systemic symptoms [Recovering/Resolving]
  - Pyrexia [Recovering/Resolving]
